FAERS Safety Report 5799986-2 (Version None)
Quarter: 2008Q3

REPORT INFORMATION
  Report Type: 
  Country: None (occurrence: None)
  Receive Date: 20080703
  Receipt Date: 20080630
  Transmission Date: 20090109
  Serious: Yes (Hospitalization)
  Sender: FDA-Public Use
  Company Number: US-ASTRAZENECA-2006UW07008

PATIENT
  Age: 35 Year
  Sex: Male
  Weight: 113.6 kg

DRUGS (7)
  1. SEROQUEL [Suspect]
     Indication: PSYCHOTIC DISORDER
     Route: 048
     Dates: start: 20021001, end: 20051101
  2. ABILIFY [Concomitant]
     Dates: start: 20030101
  3. GEODON [Concomitant]
     Dates: start: 20030101, end: 20060101
  4. RISPERDAL [Concomitant]
     Dates: start: 20030701, end: 20030801
  5. THORAZINE [Concomitant]
     Dates: end: 20050101
  6. ZYPREXA [Concomitant]
     Dates: start: 20020901, end: 20021001
  7. MOBAN [Concomitant]
     Dates: start: 20060201

REACTIONS (5)
  - BLOOD CHOLESTEROL INCREASED [None]
  - BLOOD TRIGLYCERIDES INCREASED [None]
  - THERAPEUTIC AGENT TOXICITY [None]
  - TYPE 2 DIABETES MELLITUS [None]
  - WEIGHT INCREASED [None]
